FAERS Safety Report 8170371-1 (Version None)
Quarter: 2012Q1

REPORT INFORMATION
  Report Type: 
  Country: None (occurrence: None)
  Receive Date: 20120228
  Receipt Date: 20120221
  Transmission Date: 20120608
  Serious: Yes (Hospitalization, Other)
  Sender: FDA-Public Use
  Company Number: IT-PFIZER INC-2012046693

PATIENT
  Age: 73 Year
  Sex: Male

DRUGS (7)
  1. LACIREX [Concomitant]
  2. ESOMEPRAZOLE [Concomitant]
  3. IRINOTECAN HCL [Suspect]
     Indication: COLON CANCER
     Dosage: 250 MG, CYCLIC
     Route: 042
     Dates: start: 20110907, end: 20111006
  4. ZOFRAN [Concomitant]
  5. MAGNESIUM HYDROXIDE TAB [Concomitant]
  6. FLUOROURACIL [Concomitant]
  7. PREFOLIC [Concomitant]

REACTIONS (3)
  - PRESYNCOPE [None]
  - FALL [None]
  - DIARRHOEA [None]
